FAERS Safety Report 9716857 (Version 2)
Quarter: 2014Q1

REPORT INFORMATION
  Report Type: Spontaneous
  Country: US (occurrence: US)
  Receive Date: 20131127
  Receipt Date: 20140121
  Transmission Date: 20141002
  Serious: Yes (Other)
  Sender: FDA-Public Use
  Company Number: US-009507513-1311USA007854

PATIENT
  Sex: Female

DRUGS (1)
  1. LOSARTAN POTASSIUM [Suspect]
     Route: 048

REACTIONS (3)
  - Cerebrovascular accident [Unknown]
  - Myalgia [Unknown]
  - Blood pressure inadequately controlled [Recovered/Resolved]
